FAERS Safety Report 8975099 (Version 2)
Quarter: 2013Q1

REPORT INFORMATION
  Report Type: Spontaneous
  Country: US (occurrence: US)
  Receive Date: 20121219
  Receipt Date: 20130122
  Transmission Date: 20140127
  Serious: Yes (Other)
  Sender: FDA-Public Use
  Company Number: PHEH2012US024908

PATIENT
  Sex: Female

DRUGS (1)
  1. GILENYA [Suspect]
     Indication: RELAPSING-REMITTING MULTIPLE SCLEROSIS
     Dosage: 1 DF, UNK
     Route: 048

REACTIONS (5)
  - Central nervous system lesion [Unknown]
  - Hypoaesthesia [Unknown]
  - Fatigue [Unknown]
  - Immunosuppression [Unknown]
  - Headache [Unknown]
